FAERS Safety Report 8531214-7 (Version None)
Quarter: 2012Q3

REPORT INFORMATION
  Report Type: 
  Country: None (occurrence: None)
  Receive Date: 20120723
  Receipt Date: 20120710
  Transmission Date: 20120928
  Serious: Yes (Hospitalization, Other)
  Sender: FDA-Public Use
  Company Number: US-ELI_LILLY_AND_COMPANY-US201207003623

PATIENT
  Age: 56 Year
  Sex: Female

DRUGS (16)
  1. REGLAN [Concomitant]
  2. CYMBALTA [Suspect]
     Indication: DEPRESSION
     Dosage: 60 MG, UNK
     Dates: start: 20120601
  3. ALBUTEROL [Concomitant]
  4. TOPAMAX [Concomitant]
     Dosage: 25 MG, UNK
  5. AMLODIPINE [Concomitant]
  6. BYSTOLIC [Concomitant]
  7. PROZAC [Suspect]
     Dosage: 20 MG, UNK
  8. ADVAIR DISKUS 100/50 [Concomitant]
  9. PROZAC [Suspect]
     Indication: DEPRESSION
     Dosage: 10 MG, UNK
     Dates: start: 19930101
  10. FLUOXETINE HYDROCHLORIDE [Concomitant]
  11. ZOCOR [Concomitant]
  12. OXYBUTYNIN [Concomitant]
  13. PROZAC [Suspect]
     Dosage: 40 MG, UNK
  14. HYOSCYAMINE [Concomitant]
     Dosage: 0.125 MG, UNK
  15. NEURONTIN [Concomitant]
  16. ISOSORBIDE [Concomitant]

REACTIONS (30)
  - CORONARY ARTERY DISEASE [None]
  - PAIN [None]
  - HYPOAESTHESIA [None]
  - ROTATOR CUFF SYNDROME [None]
  - CHEST PAIN [None]
  - HYPERTONIC BLADDER [None]
  - HERPES VIRUS INFECTION [None]
  - ANXIETY [None]
  - FATIGUE [None]
  - MENISCUS LESION [None]
  - DIVERTICULITIS [None]
  - SLEEP APNOEA SYNDROME [None]
  - DYSKINESIA [None]
  - MYALGIA [None]
  - PSYCHOMOTOR HYPERACTIVITY [None]
  - SYSTEMIC LUPUS ERYTHEMATOSUS [None]
  - GALLBLADDER OPERATION [None]
  - ASTHMA [None]
  - HEADACHE [None]
  - PLANTAR FASCIITIS [None]
  - HYPERTENSION [None]
  - BONE PAIN [None]
  - SKIN DISORDER [None]
  - RECTOCELE REPAIR [None]
  - ANOGENITAL WARTS [None]
  - GASTROINTESTINAL TRACT IRRITATION [None]
  - ULCER [None]
  - DRUG INEFFECTIVE [None]
  - BUNION OPERATION [None]
  - GASTROOESOPHAGEAL REFLUX DISEASE [None]
